FAERS Safety Report 13338596 (Version 3)
Quarter: 2017Q2

REPORT INFORMATION
  Report Type: Spontaneous
  Country: US (occurrence: US)
  Receive Date: 20170315
  Receipt Date: 20170615
  Transmission Date: 20170830
  Serious: Yes (Hospitalization)
  Sender: FDA-Public Use
  Company Number: US-PFIZER INC-2017108495

PATIENT
  Age: 69 Year
  Sex: Male
  Weight: 64 kg

DRUGS (10)
  1. ALLERGIS [Concomitant]
     Indication: HEADACHE
     Dates: end: 201612
  2. LYRICA [Suspect]
     Active Substance: PREGABALIN
     Indication: PAIN
  3. EXCEDRIN [Concomitant]
     Active Substance: ACETAMINOPHEN\ASPIRIN\CAFFEINE
     Dosage: OCCASIONALLY
  4. ALAHIST PE [Concomitant]
     Indication: HEADACHE
     Dosage: UNK, AS NEEDED (1 Q TO 4-6 PRN HA)
     Dates: start: 20110401
  5. LISINOPRIL. [Concomitant]
     Active Substance: LISINOPRIL
     Dosage: UNK
  6. ALBUTEROL HFA [Concomitant]
     Active Substance: ALBUTEROL SULFATE
     Indication: CHRONIC OBSTRUCTIVE PULMONARY DISEASE
     Dosage: UNK (2 PUFFS Q 4-6 PRN)
     Dates: start: 20150921
  7. LYRICA [Suspect]
     Active Substance: PREGABALIN
     Indication: NEURALGIA
     Dosage: 100 MG, 3X/DAY
     Route: 048
     Dates: start: 20141023
  8. LISINOPRIL. [Concomitant]
     Active Substance: LISINOPRIL
     Indication: HYPERTENSION
     Dosage: 20 MG, DAILY
     Dates: start: 20101102
  9. LYRICA [Suspect]
     Active Substance: PREGABALIN
     Indication: FIBROMYALGIA
     Dosage: 100 MG, 3X/DAY
     Route: 048
  10. MOBIC [Concomitant]
     Active Substance: MELOXICAM
     Indication: PAIN
     Dosage: UNK UNK, 2X/DAY
     Dates: start: 20170321

REACTIONS (7)
  - Intentional product misuse [Not Recovered/Not Resolved]
  - Thalamus haemorrhage [Recovered/Resolved]
  - Stress [Recovered/Resolved]
  - Cerebrovascular accident [Recovered/Resolved]
  - Hypertension [Recovered/Resolved]
  - Weight increased [Unknown]
  - Haemorrhage [Recovered/Resolved]

NARRATIVE: CASE EVENT DATE: 201612
